FAERS Safety Report 7475348-7 (Version None)
Quarter: 2011Q2

REPORT INFORMATION
  Report Type: 
  Country: None (occurrence: None)
  Receive Date: 20110512
  Receipt Date: 20110505
  Transmission Date: 20111010
  Serious: Yes (Life-Threatening, Hospitalization, Other)
  Sender: FDA-Public Use
  Company Number: FI-ABBOTT-11P-055-0719959-00

PATIENT
  Sex: Male
  Weight: 67 kg

DRUGS (3)
  1. PREDNISOLONE [Concomitant]
     Indication: PRODUCT USED FOR UNKNOWN INDICATION
     Dosage: 40MG ONCE DAILY, TAPERED DOWN TO 10MG
  2. PREDNISOLONE [Concomitant]
  3. HUMIRA [Suspect]
     Indication: CROHN'S DISEASE
     Route: 058
     Dates: start: 20100804, end: 20100929

REACTIONS (10)
  - NAUSEA [None]
  - ENTERITIS INFECTIOUS [None]
  - GASTROINTESTINAL DISORDER [None]
  - INTESTINAL MASS [None]
  - PYREXIA [None]
  - LYMPHOMA [None]
  - WEIGHT DECREASED [None]
  - FATIGUE [None]
  - ABDOMINAL PAIN UPPER [None]
  - ILEUS [None]
